FAERS Safety Report 8471483-5 (Version None)
Quarter: 2012Q2

REPORT INFORMATION
  Report Type: 
  Country: None (occurrence: None)
  Receive Date: 20120627
  Receipt Date: 20120614
  Transmission Date: 20120825
  Serious: Yes (Hospitalization, Other)
  Sender: FDA-Public Use
  Company Number: DE-COVIDIEN/TYCO HEALTHCARE/MALLINCKRODT-T201201235

PATIENT
  Sex: Female
  Weight: 60 kg

DRUGS (7)
  1. PALLADONE [Suspect]
     Indication: BACK PAIN
     Dosage: 12 MG, QD
     Route: 048
     Dates: start: 20100901
  2. EXALGO [Suspect]
     Dosage: 16 MG QD
     Route: 048
  3. PALLADONE [Suspect]
     Dosage: 8 MG, QD
     Route: 048
     Dates: start: 20111001
  4. NEBIVOLOL HCL [Concomitant]
     Indication: HYPERTENSION
     Dosage: 2.5 MG, QD
     Route: 048
     Dates: start: 19940801
  5. RAMIPRIL [Concomitant]
     Indication: HYPERTENSION
     Dosage: 5 MG, QD
     Route: 048
     Dates: start: 19940801
  6. TRIAMTERENE AND HYDROCHLOROTHIAZIDE [Concomitant]
     Indication: HYPERTENSION
     Dosage: UNK
     Route: 048
     Dates: start: 19940801
  7. EXALGO [Suspect]
     Indication: BACK PAIN
     Dosage: 16 MG, QD
     Route: 048
     Dates: start: 20110101

REACTIONS (9)
  - WEIGHT DECREASED [None]
  - ALPHA 2 GLOBULIN INCREASED [None]
  - DEPRESSION [None]
  - VOMITING [None]
  - HALLUCINATION [None]
  - DRUG INTOLERANCE [None]
  - NAUSEA [None]
  - NIGHT SWEATS [None]
  - CHEST PAIN [None]
